FAERS Safety Report 10146931 (Version 2)
Quarter: 2014Q2

REPORT INFORMATION
  Report Type: Spontaneous
  Country: US (occurrence: US)
  Receive Date: 20140501
  Receipt Date: 20140501
  Transmission Date: 20141212
  Serious: Yes (Other)
  Sender: FDA-Public Use
  Company Number: US-BANPHARM-20142598

PATIENT
  Age: 22 Year
  Sex: Male

DRUGS (1)
  1. NAPROXEN UNKNOWN PRODUCT [Suspect]

REACTIONS (2)
  - Drug eruption [Unknown]
  - Dermatitis bullous [Unknown]
